FAERS Safety Report 8856410 (Version 1)
Quarter: 2012Q4

REPORT INFORMATION
  Report Type: Spontaneous
  Country: ES (occurrence: None)
  Receive Date: 20121018
  Receipt Date: 20121018
  Transmission Date: 20130627
  Serious: Yes (Other)
  Sender: FDA-Public Use
  Company Number: 2012CP000131

PATIENT
  Age: 76 Year
  Sex: Female

DRUGS (6)
  1. PERFALGAN [Suspect]
     Indication: PROPHYLAXIS
     Route: 042
     Dates: start: 20120213, end: 20120216
  2. SERTRALINE (SERTRALINE) (SERTRALINE) [Suspect]
     Indication: DEPRESSION
     Route: 048
     Dates: start: 20111107
  3. CEFAZOLINE [Suspect]
     Indication: PROPHYLAXIS
     Route: 042
     Dates: start: 20120213, end: 20120213
  4. PANTOPRAZOLE (PANTOPRAZOLE) [Suspect]
     Indication: PROPHYLAXIS
     Route: 048
     Dates: start: 20120213
  5. METAMIZOLE [Suspect]
     Indication: PROCEDURAL PAIN
     Route: 042
     Dates: start: 20120213, end: 20120216
  6. CLEXANE (ENOXAPARIN SODIUM) [Suspect]
     Indication: PROPHYLAXIS
     Route: 058
     Dates: start: 20120213, end: 20120214

REACTIONS (1)
  - Hepatitis [None]
